FAERS Safety Report 6936523-0 (Version None)
Quarter: 2010Q3

REPORT INFORMATION
  Report Type: 
  Country: None (occurrence: None)
  Receive Date: 20100823
  Receipt Date: 20100816
  Transmission Date: 20110219
  Serious: No
  Sender: FDA-Public Use
  Company Number: US-PFIZER INC-2010103000

PATIENT
  Sex: Female

DRUGS (2)
  1. AMLODIPINE BESYLATE [Suspect]
     Indication: HYPERTENSION
     Dosage: 5 MG, UNK
     Route: 048
  2. BENAZEPRIL HYDROCHLORIDE [Suspect]
     Dosage: UNK

REACTIONS (4)
  - DIZZINESS [None]
  - MALAISE [None]
  - PALPITATIONS [None]
  - PHARYNGEAL DISORDER [None]
